FAERS Safety Report 4902565-X (Version None)
Quarter: 2006Q1

REPORT INFORMATION
  Report Type: 
  Country: None (occurrence: None)
  Receive Date: 20060202
  Receipt Date: 20060128
  Transmission Date: 20060701
  Serious: Yes (Life-Threatening, Hospitalization)
  Sender: FDA-Public Use
  Company Number: PHFR2006GB00634

PATIENT
  Age: 80 Year
  Sex: Female

DRUGS (5)
  1. TIMOLOL            (TIMOLOL MALEATE) [Suspect]
     Indication: GLAUCOMA
     Dosage: 1 DROP D BOTH EYES
     Route: 047
     Dates: end: 20051229
  2. LISINOPRIL [Concomitant]
  3. XALATAN [Concomitant]
  4. LEVOTHYROXINE SODIUM [Concomitant]
  5. BENDROFLUAZIDE            (BENDROFLUMETHIAZIDE) [Concomitant]

REACTIONS (1)
  - ATRIOVENTRICULAR BLOCK COMPLETE [None]
